FAERS Safety Report 7830156-X (Version None)
Quarter: 2011Q4

REPORT INFORMATION
  Report Type: 
  Country: None (occurrence: None)
  Receive Date: 20111021
  Receipt Date: 20111017
  Transmission Date: 20120403
  Serious: Yes (Hospitalization)
  Sender: FDA-Public Use
  Company Number: US-GENZYME-RENA-1001354

PATIENT
  Sex: Female

DRUGS (2)
  1. RENVELA [Suspect]
     Indication: HYPERPHOSPHATAEMIA
     Dosage: 2.4 G, TID
     Route: 048
  2. RENAGEL [Suspect]
     Indication: HYPERPHOSPHATAEMIA
     Route: 048

REACTIONS (3)
  - PAIN [None]
  - NAUSEA [None]
  - INTESTINAL OBSTRUCTION [None]
